FAERS Safety Report 18511483 (Version 1)
Quarter: 2020Q4

REPORT INFORMATION
  Report Type: Spontaneous
  Country: US (occurrence: US)
  Receive Date: 20201117
  Receipt Date: 20201117
  Transmission Date: 20210114
  Serious: No
  Sender: FDA-Public Use
  Company Number: US-RISING PHARMA HOLDINGS, INC.-US2020RIS000205

PATIENT
  Sex: Female
  Weight: 51.7 kg

DRUGS (1)
  1. LANSOPRAZOLE, AMOXICILLIN, CLARITHROMYCIN [Suspect]
     Active Substance: AMOXICILLIN\CLARITHROMYCIN\LANSOPRAZOLE
     Indication: HELICOBACTER INFECTION
     Dosage: 2 DOSAGE UNITS, 2X/DAY
     Route: 048

REACTIONS (7)
  - Serum ferritin increased [Recovered/Resolved]
  - Disturbance in attention [Recovered/Resolved]
  - Hepatic enzyme increased [Recovered/Resolved]
  - Impaired reasoning [Recovered/Resolved]
  - Anxiety [Recovered/Resolved]
  - Faeces discoloured [Recovering/Resolving]
  - Insomnia [Recovering/Resolving]
